FAERS Safety Report 21355137 (Version 7)
Quarter: 2023Q2

REPORT INFORMATION
  Report Type: Spontaneous
  Country: AT (occurrence: AT)
  Receive Date: 20220920
  Receipt Date: 20230515
  Transmission Date: 20230722
  Serious: Yes (Life-Threatening, Other)
  Sender: FDA-Public Use
  Company Number: AT-BIOGEN-2022BI01151074

PATIENT
  Age: 52 Year
  Sex: Male
  Weight: 78 kg

DRUGS (1)
  1. TYSABRI [Suspect]
     Active Substance: NATALIZUMAB
     Indication: Multiple sclerosis
     Route: 050
     Dates: start: 20071030, end: 20220811

REACTIONS (4)
  - Progressive multifocal leukoencephalopathy [Recovered/Resolved]
  - Immune reconstitution inflammatory syndrome [Unknown]
  - Multiple sclerosis relapse [Unknown]
  - Prescribed underdose [Unknown]

NARRATIVE: CASE EVENT DATE: 20220520
